FAERS Safety Report 25493366 (Version 3)
Quarter: 2025Q3

REPORT INFORMATION
  Report Type: Spontaneous
  Country: IN (occurrence: IN)
  Receive Date: 20250630
  Receipt Date: 20250731
  Transmission Date: 20251021
  Serious: Yes (Hospitalization, Other)
  Sender: MACLEODS
  Company Number: IN-MACLEODS PHARMA-MAC2025053729

PATIENT

DRUGS (29)
  1. ARIPIPRAZOLE [Suspect]
     Active Substance: ARIPIPRAZOLE
     Indication: Insomnia
     Route: 065
  2. ARIPIPRAZOLE [Suspect]
     Active Substance: ARIPIPRAZOLE
     Indication: Hallucination, visual
  3. DONEPEZIL [Suspect]
     Active Substance: DONEPEZIL
     Indication: Insomnia
     Route: 065
     Dates: start: 202311, end: 202404
  4. DONEPEZIL [Suspect]
     Active Substance: DONEPEZIL
     Indication: Hallucination, visual
  5. DONEPEZIL [Suspect]
     Active Substance: DONEPEZIL
     Indication: Logorrhoea
  6. MEMANTINE [Suspect]
     Active Substance: MEMANTINE
     Indication: Insomnia
     Route: 065
     Dates: start: 202311
  7. QUETIAPINE [Suspect]
     Active Substance: QUETIAPINE
     Indication: Insomnia
     Route: 065
     Dates: start: 202311, end: 202311
  8. QUETIAPINE [Suspect]
     Active Substance: QUETIAPINE
     Indication: Hallucination, visual
     Route: 065
     Dates: start: 202311, end: 202312
  9. QUETIAPINE [Suspect]
     Active Substance: QUETIAPINE
     Indication: Logorrhoea
     Route: 065
     Dates: start: 202312, end: 202404
  10. PREGABALIN [Suspect]
     Active Substance: PREGABALIN
     Indication: Pain in extremity
     Route: 048
     Dates: start: 2009, end: 202404
  11. DULOXETINE [Suspect]
     Active Substance: DULOXETINE
     Indication: Feeling cold
     Route: 065
     Dates: start: 202308, end: 202404
  12. TRIHEXYPHENIDYL [Suspect]
     Active Substance: TRIHEXYPHENIDYL
     Indication: Tremor
     Route: 065
     Dates: start: 202311, end: 202404
  13. TRIHEXYPHENIDYL [Suspect]
     Active Substance: TRIHEXYPHENIDYL
     Indication: Gait disturbance
  14. TRIHEXYPHENIDYL [Suspect]
     Active Substance: TRIHEXYPHENIDYL
     Indication: Lack of spontaneous speech
  15. AMANTADINE [Suspect]
     Active Substance: AMANTADINE
     Indication: Insomnia
     Route: 065
     Dates: start: 202311, end: 202311
  16. AMANTADINE [Suspect]
     Active Substance: AMANTADINE
     Indication: Neuropsychological symptoms
  17. MELATONIN [Suspect]
     Active Substance: MELATONIN
     Indication: Insomnia
     Route: 048
     Dates: start: 202311, end: 202404
  18. MELATONIN [Suspect]
     Active Substance: MELATONIN
     Indication: Neuropsychological symptoms
  19. MELATONIN [Suspect]
     Active Substance: MELATONIN
     Indication: Insomnia
  20. ARMODAFINIL [Suspect]
     Active Substance: ARMODAFINIL
     Indication: Sedation
     Route: 065
  21. Salbutamol-budesonide [Concomitant]
     Route: 045
     Dates: start: 2009, end: 202404
  22. Tamsulosin-dutasteride [Concomitant]
     Indication: Product used for unknown indication
     Route: 065
     Dates: start: 2023, end: 202404
  23. LINAGLIPTIN [Concomitant]
     Active Substance: LINAGLIPTIN
     Indication: Product used for unknown indication
     Route: 065
     Dates: start: 2023, end: 202404
  24. ASPIRIN [Concomitant]
     Active Substance: ASPIRIN
     Indication: Product used for unknown indication
     Route: 065
  25. Multivitamins with Zinc B12 [Concomitant]
     Indication: Product used for unknown indication
     Route: 065
  26. IRON [Concomitant]
     Active Substance: IRON
     Indication: Product used for unknown indication
     Route: 065
  27. RABEPRAZOLE [Concomitant]
     Active Substance: RABEPRAZOLE
     Indication: Product used for unknown indication
     Route: 065
  28. RIVASTIGMINE [Concomitant]
     Active Substance: RIVASTIGMINE
     Indication: Product used for unknown indication
     Route: 065
     Dates: start: 202311, end: 202404
  29. Montelukast-fexofenadine [Concomitant]
     Indication: Product used for unknown indication
     Route: 065

REACTIONS (18)
  - Neuropsychological symptoms [Recovered/Resolved]
  - Insomnia [Recovered/Resolved]
  - Hallucination, visual [Recovered/Resolved]
  - Soliloquy [Recovered/Resolved]
  - Fall [Recovered/Resolved]
  - Pyrexia [Recovered/Resolved]
  - Aphthous ulcer [Recovered/Resolved]
  - Urinary incontinence [Recovered/Resolved]
  - Tremor [Recovered/Resolved]
  - Decreased appetite [Recovered/Resolved]
  - Decreased gait velocity [Recovered/Resolved]
  - Sedation [Recovered/Resolved]
  - Psychotic disorder [Recovered/Resolved]
  - Speech disorder [Recovered/Resolved]
  - Abnormal behaviour [Recovered/Resolved]
  - Delirium [Recovered/Resolved]
  - Dry mouth [Recovered/Resolved]
  - Drug interaction [Unknown]

NARRATIVE: CASE EVENT DATE: 20231101
